FAERS Safety Report 4803631-X (Version None)
Quarter: 2005Q4

REPORT INFORMATION
  Report Type: 
  Country: None (occurrence: None)
  Receive Date: 20051014
  Receipt Date: 20050930
  Transmission Date: 20060501
  Serious: Yes (Hospitalization)
  Sender: FDA-Public Use
  Company Number: 8011687

PATIENT
  Age: 56 Year
  Sex: Male

DRUGS (8)
  1. KEPPRA [Suspect]
     Indication: BIPOLAR DISORDER
     Dosage: 500 MG 2/D PO
     Route: 048
     Dates: start: 20041215, end: 20041216
  2. KEPPRA [Suspect]
     Indication: BIPOLAR DISORDER
     Dosage: 1000 MG 2/D PO
     Route: 048
     Dates: start: 20041217, end: 20050104
  3. KEPPRA [Suspect]
     Indication: BIPOLAR DISORDER
     Dosage: 1500 MG 2/D PO
     Route: 048
     Dates: start: 20050105, end: 20050908
  4. KEPPRA [Suspect]
     Indication: BIPOLAR DISORDER
     Dosage: 500 MG 3/D PO
     Route: 048
     Dates: start: 20050909, end: 20050912
  5. KEPPRA [Suspect]
     Indication: BIPOLAR DISORDER
     Dosage: 2500 MG PO
     Route: 048
     Dates: start: 20050913
  6. SEROQUEL  /01270901/ [Suspect]
     Indication: BIPOLAR DISORDER
     Dosage: 50 MG 2/D PO
     Route: 048
     Dates: start: 20050301, end: 20050101
  7. SEROQUEL   /01270901/ [Suspect]
     Indication: BIPOLAR DISORDER
     Dosage: 125 MG PO
     Route: 048
     Dates: start: 20050101
  8. LORAZEPAM [Concomitant]

REACTIONS (2)
  - ALCOHOL USE [None]
  - BLOOD ALKALINE PHOSPHATASE INCREASED [None]
